FAERS Safety Report 6466072-8 (Version None)
Quarter: 2009Q4

REPORT INFORMATION
  Report Type: 
  Country: None (occurrence: None)
  Receive Date: 20091202
  Receipt Date: 20091124
  Transmission Date: 20100525
  Serious: Yes (Other)
  Sender: FDA-Public Use
  Company Number: NL-JNJFOC-20091107786

PATIENT
  Age: 20 Year
  Sex: Female
  Weight: 44 kg

DRUGS (2)
  1. TOPAMAX [Suspect]
     Indication: EPILEPSY
     Route: 048
  2. OESTROGEN [Concomitant]
     Route: 065

REACTIONS (5)
  - ALCOHOL INTERACTION [None]
  - DEPRESSION [None]
  - LEARNING DISORDER [None]
  - MEMORY IMPAIRMENT [None]
  - WEIGHT DECREASED [None]
